FAERS Safety Report 12081131 (Version 1)
Quarter: 2016Q1

REPORT INFORMATION
  Report Type: Report from Study
  Country: US (occurrence: US)
  Receive Date: 20160216
  Receipt Date: 20160216
  Transmission Date: 20160526
  Serious: Yes (Other)
  Sender: FDA-Public Use
  Company Number: US-CELGENE-USA-2016020482

PATIENT

DRUGS (5)
  1. OXALIPLATIN. [Concomitant]
     Active Substance: OXALIPLATIN
     Indication: NEOPLASM MALIGNANT
     Dosage: 65-85 MG/M2
     Route: 041
  2. LEUCOVORIN. [Concomitant]
     Active Substance: LEUCOVORIN
     Indication: NEOPLASM MALIGNANT
     Route: 041
  3. 5-FLUOROURACIL [Concomitant]
     Active Substance: FLUOROURACIL
     Route: 065
  4. 5-FLUOROURACIL [Concomitant]
     Active Substance: FLUOROURACIL
     Indication: NEOPLASM MALIGNANT
     Route: 040
  5. REVLIMID [Suspect]
     Active Substance: LENALIDOMIDE
     Indication: NEOPLASM MALIGNANT
     Dosage: 5-15 MG
     Route: 048

REACTIONS (13)
  - Transaminases increased [Unknown]
  - Diarrhoea [Unknown]
  - Skin fissures [Unknown]
  - Myalgia [Unknown]
  - Pain in extremity [Unknown]
  - Leukocytosis [Unknown]
  - Weight decreased [Unknown]
  - Hypersensitivity [Unknown]
  - Neuropathy peripheral [Unknown]
  - Dry mouth [Unknown]
  - Oedema peripheral [Unknown]
  - Constipation [Unknown]
  - Chills [Unknown]
